FAERS Safety Report 13153403 (Version 1)
Quarter: 2017Q1

REPORT INFORMATION
  Report Type: Spontaneous
  Country: US (occurrence: US)
  Receive Date: 20170125
  Receipt Date: 20170125
  Transmission Date: 20170428
  Serious: No
  Sender: FDA-Public Use
  Company Number: None

PATIENT
  Age: 57 Year
  Sex: Female
  Weight: 67.59 kg

DRUGS (1)
  1. OMEPRAZOLE 20MG DR. REDDY^S LABORATORIES LIMITED ON [Suspect]
     Active Substance: OMEPRAZOLE
     Route: 048
     Dates: start: 20161006, end: 20161031

REACTIONS (3)
  - Swelling face [None]
  - Feeling abnormal [None]
  - Rash [None]

NARRATIVE: CASE EVENT DATE: 20161019
